FAERS Safety Report 9924498 (Version 2)
Quarter: 2014Q2

REPORT INFORMATION
  Report Type: Spontaneous
  Country: US (occurrence: US)
  Receive Date: 20140226
  Receipt Date: 20140408
  Transmission Date: 20141212
  Serious: Yes (Hospitalization, Other)
  Sender: FDA-Public Use
  Company Number: US-ASTELLAS-2014US001767

PATIENT
  Age: 84 Year
  Sex: Female

DRUGS (2)
  1. VESICARE [Suspect]
     Indication: URGE INCONTINENCE
     Dosage: 5 MG, UID/QD
     Route: 048
     Dates: end: 20140114
  2. VESICARE [Suspect]
     Dosage: 5 MG, UID/QD
     Route: 048
     Dates: start: 20140210

REACTIONS (3)
  - Drug ineffective [Unknown]
  - Diverticulitis [Recovered/Resolved]
  - Gastroenteritis viral [Recovered/Resolved]
